FAERS Safety Report 7887862-0 (Version None)
Quarter: 2011Q4

REPORT INFORMATION
  Report Type: 
  Country: None (occurrence: None)
  Receive Date: 20111103
  Receipt Date: 20111024
  Transmission Date: 20120403
  Serious: Yes (Life-Threatening)
  Sender: FDA-Public Use
  Company Number: JP-JNJFOC-20111013244

PATIENT
  Sex: Female

DRUGS (7)
  1. LASIX [Concomitant]
     Indication: CARDIAC FAILURE CONGESTIVE
     Route: 042
     Dates: start: 20111014
  2. MIDAZOLAM HCL [Concomitant]
     Indication: EXTUBATION
     Route: 042
     Dates: start: 20111015, end: 20111019
  3. PENTAZOCINE LACTATE [Concomitant]
     Indication: EXTUBATION
     Route: 042
     Dates: start: 20111015, end: 20111019
  4. LEVOFLOXACIN [Suspect]
     Indication: PNEUMONIA
     Route: 041
     Dates: start: 20111001
  5. NOVO HEPARIN [Concomitant]
     Indication: CARDIAC FAILURE CONGESTIVE
     Route: 042
     Dates: start: 20111015, end: 20111019
  6. FAMOTIDINE [Concomitant]
     Route: 042
     Dates: start: 20111015
  7. CATABON [Concomitant]
     Route: 065
     Dates: start: 20111015, end: 20111018

REACTIONS (2)
  - TORSADE DE POINTES [None]
  - ATRIOVENTRICULAR BLOCK COMPLETE [None]
